FAERS Safety Report 8190450-2 (Version None)
Quarter: 2012Q1

REPORT INFORMATION
  Report Type: 
  Country: None (occurrence: None)
  Receive Date: 20120307
  Receipt Date: 20120301
  Transmission Date: 20120608
  Serious: Yes (Other)
  Sender: FDA-Public Use
  Company Number: US-BAYER-2012-003102

PATIENT
  Age: 67 Year
  Sex: Male

DRUGS (8)
  1. VENTAVIS [Suspect]
     Indication: PULMONARY ARTERIAL HYPERTENSION
     Dosage: UNK ?G, UNK
     Route: 055
     Dates: start: 20111119, end: 20111205
  2. OXYGEN [Concomitant]
  3. TRACLEER [Suspect]
     Indication: PULMONARY ARTERIAL HYPERTENSION
     Dosage: UNK
     Route: 048
     Dates: start: 20091119
  4. EPOPROSTENOL SODIUM [Suspect]
     Route: 055
  5. VIAGRA [Concomitant]
  6. PROSTACYCLIN [Concomitant]
  7. COUMADIN [Concomitant]
  8. ANTITHROMBOTIC AGENTS [Concomitant]

REACTIONS (3)
  - HYPOGLYCAEMIA [None]
  - PRODUCTIVE COUGH [None]
  - PNEUMONIA [None]
